FAERS Safety Report 8870863 (Version 1)
Quarter: 2012Q4

REPORT INFORMATION
  Report Type: Spontaneous
  Country: US (occurrence: None)
  Receive Date: 20121026
  Receipt Date: 20121026
  Transmission Date: 20130627
  Serious: Yes (Other)
  Sender: FDA-Public Use
  Company Number: None

PATIENT
  Age: 33 Year
  Sex: Female
  Weight: 54.43 kg

DRUGS (1)
  1. ORAJEL ANTISEPTIC RINSE FOR MOUTH SORES [Suspect]
     Indication: ORAL INFECTION
     Route: 048
     Dates: start: 20101019, end: 20101021

REACTIONS (15)
  - Chemical burn of gastrointestinal tract [None]
  - Chemical burn of respiratory tract [None]
  - Hypertrophy of tongue papillae [None]
  - Plicated tongue [None]
  - Swollen tongue [None]
  - Dyspnoea [None]
  - Aphagia [None]
  - Fluid intake reduced [None]
  - Lethargy [None]
  - Pyrexia [None]
  - Malnutrition [None]
  - Pharyngeal oedema [None]
  - Abasia [None]
  - Aphasia [None]
  - Incorrect route of drug administration [None]
